FAERS Safety Report 25836534 (Version 1)
Quarter: 2025Q3

REPORT INFORMATION
  Report Type: Spontaneous
  Country: US (occurrence: US)
  Receive Date: 20250923
  Receipt Date: 20250923
  Transmission Date: 20251020
  Serious: No
  Sender: MYLAN
  Company Number: US-MYLANLABS-2025M1078511

PATIENT
  Age: 95 Year
  Sex: Female

DRUGS (1)
  1. BREYNA [Suspect]
     Active Substance: BUDESONIDE\FORMOTEROL FUMARATE
     Indication: Chronic obstructive pulmonary disease
     Dosage: 160 PER 4.5 MICROGRAM BID (TWICE A DAY)
     Dates: start: 2025

REACTIONS (4)
  - Wrong technique in device usage process [Unknown]
  - Device delivery system issue [Unknown]
  - Device issue [Unknown]
  - Device malfunction [Unknown]

NARRATIVE: CASE EVENT DATE: 20250912
